FAERS Safety Report 4565062-X (Version None)
Quarter: 2005Q1

REPORT INFORMATION
  Report Type: 
  Country: None (occurrence: None)
  Receive Date: 20050112
  Receipt Date: 20050112
  Transmission Date: 20050727
  Serious: No
  Sender: FDA-Public Use
  Company Number: None

PATIENT
  Age: 45 Year
  Sex: Male
  Weight: 74.3899 kg

DRUGS (2)
  1. OXYCODANCE/APAP 5/325 [Suspect]
     Indication: BACK PAIN
     Dosage: 1-2 Q 4 HR PRN PAIN
     Dates: start: 20031101
  2. OXYCODANCE/APAP 5/325 [Suspect]
     Indication: NECK PAIN
     Dosage: 1-2 Q 4 HR PRN PAIN
     Dates: start: 20031101

REACTIONS (2)
  - DRUG EFFECT DECREASED [None]
  - PHARMACEUTICAL PRODUCT COMPLAINT [None]
